FAERS Safety Report 6186026-9 (Version None)
Quarter: 2009Q2

REPORT INFORMATION
  Report Type: 
  Country: None (occurrence: None)
  Receive Date: 20090511
  Receipt Date: 20090430
  Transmission Date: 20091009
  Serious: Yes (Other)
  Sender: FDA-Public Use
  Company Number: FR-MERCK-0905FRA00005

PATIENT
  Age: 70 Year
  Sex: Female

DRUGS (3)
  1. FOSAMAX [Suspect]
     Indication: OSTEOPOROSIS
     Route: 048
     Dates: start: 20050101, end: 20061201
  2. FOSAMAX [Suspect]
     Route: 048
     Dates: start: 20080501
  3. ANASTROZOLE [Concomitant]
     Indication: BREAST CANCER
     Route: 048
     Dates: start: 20080501

REACTIONS (2)
  - BREAST CANCER [None]
  - HAEMORRHOIDS [None]
